FAERS Safety Report 20676833 (Version 2)
Quarter: 2022Q3

REPORT INFORMATION
  Report Type: Spontaneous
  Country: CA (occurrence: None)
  Receive Date: 20220406
  Receipt Date: 20220715
  Transmission Date: 20221026
  Serious: Yes (Congenital Anomaly)
  Sender: FDA-Public Use
  Company Number: CA-ROCHE-3061723

PATIENT
  Age: 27 Year
  Sex: Female
  Weight: 82.8 kg

DRUGS (1)
  1. OCREVUS [Suspect]
     Active Substance: OCRELIZUMAB
     Indication: Relapsing-remitting multiple sclerosis
     Route: 042
     Dates: start: 20200304

REACTIONS (2)
  - Gastrectomy [Unknown]
  - Depression [Unknown]

NARRATIVE: CASE EVENT DATE: 20211114
